FAERS Safety Report 8855750 (Version 1)
Quarter: 2012Q4

REPORT INFORMATION
  Report Type: 
  Country: US (occurrence: US)
  Receive Date: 20121023
  Receipt Date: 20121023
  Transmission Date: 20130627
  Serious: No
  Sender: FDA-Public Use
  Company Number: US-AMGEN-USASP2012059072

PATIENT
  Sex: Female

DRUGS (12)
  1. ENBREL [Suspect]
     Indication: PRODUCT USED FOR UNKNOWN INDICATION
     Dosage: 50 mg, qwk
     Route: 058
  2. METOPROLOL [Concomitant]
     Dosage: 200 mg, UNK
  3. TRIAMTERENE AND HYDROCHLOROTHIAZID [Concomitant]
     Dosage: 37.5-25
  4. METHOTREXATE [Concomitant]
     Dosage: 50 mg, UNK
  5. FOLIC ACID [Concomitant]
     Dosage: 20 mg, UNK
  6. LEFLUNOMIDE [Concomitant]
     Dosage: 10 mg, UNK
  7. METFORMIN [Concomitant]
     Dosage: 750 mg, UNK
  8. GLIPIZIDE [Concomitant]
     Dosage: 5 mg, UNK
  9. ASPIRIN (E.C.) [Concomitant]
     Dosage: 81 mg, UNK
  10. MULTIVITAMINS, PLAIN [Concomitant]
     Dosage: UNK
  11. FISH OIL [Concomitant]
  12. KLONOPIN [Concomitant]
     Dosage: 1 mg, UNK

REACTIONS (3)
  - Malaise [Recovered/Resolved]
  - Fatigue [Unknown]
  - Oedema peripheral [Unknown]
